FAERS Safety Report 9321567 (Version 1)
Quarter: 2013Q2

REPORT INFORMATION
  Report Type: Spontaneous
  Country: AU (occurrence: None)
  Receive Date: 20130528
  Receipt Date: 20130528
  Transmission Date: 20140414
  Serious: Yes (Death)
  Sender: FDA-Public Use
  Company Number: 2013P1006236

PATIENT
  Age: 22 Year
  Sex: Male

DRUGS (3)
  1. AMPHETAMINE [Suspect]
  2. COCAINE [Suspect]
  3. METHAMPHETAMINE [Suspect]

REACTIONS (3)
  - Coronary artery disease [None]
  - Coronary artery occlusion [None]
  - Toxicity to various agents [None]
